FAERS Safety Report 7280499-6 (Version None)
Quarter: 2011Q1

REPORT INFORMATION
  Report Type: 
  Country: None (occurrence: None)
  Receive Date: 20110128
  Receipt Date: 20110113
  Transmission Date: 20110831
  Serious: Yes (Death)
  Sender: FDA-Public Use
  Company Number: NSR_00134_2011

PATIENT
  Age: 21 Year
  Sex: Female

DRUGS (1)
  1. FLUOXETINE [Suspect]
     Dosage: (DF ORAL)
     Route: 048
     Dates: start: 20090101, end: 20090101

REACTIONS (2)
  - COMPLETED SUICIDE [None]
  - POISONING [None]
